FAERS Safety Report 4718789-0 (Version None)
Quarter: 2005Q3

REPORT INFORMATION
  Report Type: 
  Country: None (occurrence: None)
  Receive Date: 20050719
  Receipt Date: 20050329
  Transmission Date: 20060218
  Serious: Yes (Other)
  Sender: FDA-Public Use
  Company Number: 2005003681

PATIENT
  Age: 79 Year
  Sex: Male
  Weight: 70.3075 kg

DRUGS (5)
  1. CELEBREX [Suspect]
     Indication: ARTHRALGIA
     Dosage: 200 MG (200 MG 1 IN 1 D) , ORAL
     Route: 048
  2. CELEBREX [Suspect]
     Indication: ARTHRITIS
     Dosage: 200 MG (200 MG 1 IN 1 D) , ORAL
     Route: 048
  3. PHENYTOIN SODIUM [Concomitant]
  4. FINASTERIDE [Concomitant]
  5. CEPHALEXIN [Concomitant]

REACTIONS (2)
  - EPISTAXIS [None]
  - HEART RATE INCREASED [None]
